FAERS Safety Report 6640012-0 (Version None)
Quarter: 2010Q1

REPORT INFORMATION
  Report Type: 
  Country: None (occurrence: None)
  Receive Date: 20100318
  Receipt Date: 20100308
  Transmission Date: 20100710
  Serious: Yes (Other)
  Sender: FDA-Public Use
  Company Number: PHHY2009BR55143

PATIENT
  Sex: Female

DRUGS (3)
  1. TRILEPTAL [Suspect]
     Indication: AFFECTIVE DISORDER
     Dosage: 300 MG, UNK
  2. TRILEPTAL [Suspect]
     Dosage: 600 MG, UNK (ONE TABLET IN THE MORNING AND ONE TABLET AT NIGHT)
  3. TRILEPTAL [Suspect]
     Dosage: 600 MG (CONCENTRATION), 1 TABLET BEFORE SLEEPING

REACTIONS (5)
  - DIZZINESS [None]
  - FALL [None]
  - FEELING DRUNK [None]
  - HAEMATOMA [None]
  - INJURY [None]
